FAERS Safety Report 7491025-0 (Version None)
Quarter: 2011Q2

REPORT INFORMATION
  Report Type: 
  Country: None (occurrence: None)
  Receive Date: 20110519
  Receipt Date: 20110516
  Transmission Date: 20111010
  Serious: Yes (Hospitalization, Other)
  Sender: FDA-Public Use
  Company Number: US-PFIZER INC-2011038402

PATIENT
  Sex: Male

DRUGS (8)
  1. VALIUM [Concomitant]
     Indication: MUSCLE SPASMS
  2. CLONAZEPAM [Concomitant]
     Indication: ANXIETY
  3. VALIUM [Concomitant]
     Indication: ANXIETY
     Dosage: UNK
     Dates: start: 20080101, end: 20100101
  4. ALPRAZOLAM [Concomitant]
     Indication: PANIC ATTACK
     Dosage: UNK
     Dates: start: 20080101, end: 20100101
  5. ALPRAZOLAM [Concomitant]
     Indication: ANXIETY
  6. CHANTIX [Suspect]
     Indication: SMOKING CESSATION THERAPY
     Dosage: STARTER PACK
     Dates: start: 20090324, end: 20090414
  7. CLONAZEPAM [Concomitant]
     Indication: PANIC ATTACK
     Dosage: UNK
     Dates: start: 20080101, end: 20100101
  8. CYMBALTA [Concomitant]
     Indication: DEPRESSION
     Dosage: UNK
     Dates: start: 20080101, end: 20100101

REACTIONS (5)
  - ANXIETY [None]
  - INSOMNIA [None]
  - NIGHTMARE [None]
  - DEPRESSION [None]
  - SUICIDE ATTEMPT [None]
